FAERS Safety Report 5636041-6 (Version None)
Quarter: 2008Q1

REPORT INFORMATION
  Report Type: 
  Country: None (occurrence: None)
  Receive Date: 20080220
  Receipt Date: 20080220
  Transmission Date: 20080703
  Serious: Yes (Other)
  Sender: FDA-Public Use
  Company Number: None

PATIENT
  Age: 49 Year
  Sex: Male
  Weight: 90.7194 kg

DRUGS (1)
  1. CHANTIX [Suspect]
     Indication: SMOKING CESSATION THERAPY
     Dosage: 1 MG 2 DAY PO
     Route: 048
     Dates: start: 20071224, end: 20080215

REACTIONS (11)
  - ABNORMAL DREAMS [None]
  - ARTHRALGIA [None]
  - CONSTIPATION [None]
  - DRY EYE [None]
  - FLATULENCE [None]
  - LIBIDO DECREASED [None]
  - LISTLESS [None]
  - MOOD SWINGS [None]
  - MYALGIA [None]
  - VISUAL DISTURBANCE [None]
  - WEIGHT INCREASED [None]
